FAERS Safety Report 5128430-3 (Version None)
Quarter: 2006Q4

REPORT INFORMATION
  Report Type: 
  Country: None (occurrence: None)
  Receive Date: 20061011
  Receipt Date: 20061003
  Transmission Date: 20070319
  Serious: Yes (Other)
  Sender: FDA-Public Use
  Company Number: 2006US-03979

PATIENT
  Age: 13 Year
  Sex: Male

DRUGS (3)
  1. ISOTRETINOIN [Suspect]
     Dosage: 30 MG, BID, UNK - SEE IMAGE
     Dates: start: 20060701, end: 20060801
  2. ISOTRETINOIN [Suspect]
     Dosage: 30 MG, BID, UNK - SEE IMAGE
     Dates: start: 20060801
  3. BACTRIM DS [Concomitant]

REACTIONS (2)
  - LIP DRY [None]
  - NIGHT BLINDNESS [None]
